FAERS Safety Report 14295238 (Version 1)
Quarter: 2017Q4

REPORT INFORMATION
  Report Type: Spontaneous
  Country: US (occurrence: US)
  Receive Date: 20171215
  Receipt Date: 20171215
  Transmission Date: 20180321
  Serious: Yes (Life-Threatening)
  Sender: FDA-Public Use
  Company Number: None

PATIENT
  Age: 56 Year
  Sex: Male
  Weight: 133.81 kg

DRUGS (2)
  1. METOLAZONE 2.5MG [Suspect]
     Active Substance: METOLAZONE
     Indication: RENAL FAILURE
     Route: 048
  2. METOLAZONE 2.5MG [Suspect]
     Active Substance: METOLAZONE
     Indication: FLUID RETENTION
     Route: 048

REACTIONS (1)
  - Renal failure [None]

NARRATIVE: CASE EVENT DATE: 20171113
